FAERS Safety Report 19797307 (Version 2)
Quarter: 2021Q4

REPORT INFORMATION
  Report Type: Spontaneous
  Country: US (occurrence: None)
  Receive Date: 20210907
  Receipt Date: 20211111
  Transmission Date: 20220303
  Serious: No
  Sender: FDA-Public Use
  Company Number: 2021A704091

PATIENT
  Age: 23087 Day
  Weight: 127 kg

DRUGS (1)
  1. BYETTA [Suspect]
     Active Substance: EXENATIDE
     Indication: Type 2 diabetes mellitus
     Dosage: 5 MCG PE TWICE DAILY AN HOUR BEFORE AM AND PM MEALS
     Route: 058

REACTIONS (3)
  - Cataract [Unknown]
  - Device malfunction [Not Recovered/Not Resolved]
  - Multiple use of single-use product [Unknown]

NARRATIVE: CASE EVENT DATE: 20210827
